FAERS Safety Report 21070807 (Version 4)
Quarter: 2022Q4

REPORT INFORMATION
  Report Type: Report from Study
  Country: CO (occurrence: CO)
  Receive Date: 20220712
  Receipt Date: 20221026
  Transmission Date: 20230113
  Serious: Yes (Other)
  Sender: FDA-Public Use
  Company Number: CO-NOVARTISPH-NVSC2022CO025852

PATIENT
  Sex: Female

DRUGS (4)
  1. KISQALI [Suspect]
     Active Substance: RIBOCICLIB
     Indication: Breast cancer metastatic
     Dosage: UNK
     Route: 048
  2. KISQALI [Suspect]
     Active Substance: RIBOCICLIB
     Dosage: 200 MG, QD
     Route: 048
  3. KISQALI [Suspect]
     Active Substance: RIBOCICLIB
     Dosage: 1 DOSAGE FORM (1 TABLET OF 200MG)
     Route: 048
  4. FEMARA [Suspect]
     Active Substance: LETROZOLE
     Indication: Breast cancer
     Dosage: UNK
     Route: 048

REACTIONS (12)
  - Metastases to lung [Unknown]
  - Pulmonary oedema [Unknown]
  - Femur fracture [Unknown]
  - Hip fracture [Unknown]
  - Leukopenia [Unknown]
  - Radius fracture [Unknown]
  - Haematology test abnormal [Unknown]
  - Decreased immune responsiveness [Unknown]
  - Wound [Unknown]
  - Fall [Unknown]
  - Drug intolerance [Unknown]
  - Stomatitis [Unknown]
